FAERS Safety Report 19475936 (Version 1)
Quarter: 2021Q2

REPORT INFORMATION
  Report Type: Spontaneous
  Country: PL (occurrence: PL)
  Receive Date: 20210630
  Receipt Date: 20210630
  Transmission Date: 20210717
  Serious: Yes (Hospitalization)
  Sender: FDA-Public Use
  Company Number: PL-TEVA-2021-PL-1926438

PATIENT
  Age: 23 Year

DRUGS (1)
  1. LAMOTRYGINA [Suspect]
     Active Substance: LAMOTRIGINE
     Route: 048
     Dates: start: 20171007, end: 20171106

REACTIONS (1)
  - Drug eruption [Not Recovered/Not Resolved]

NARRATIVE: CASE EVENT DATE: 20171007
